FAERS Safety Report 5690170-X (Version None)
Quarter: 2008Q2

REPORT INFORMATION
  Report Type: 
  Country: None (occurrence: None)
  Receive Date: 20080401
  Receipt Date: 20080317
  Transmission Date: 20081010
  Serious: Yes (Hospitalization)
  Sender: FDA-Public Use
  Company Number: FR-BAYER-200815277GPV

PATIENT
  Age: 74 Year
  Sex: Male

DRUGS (3)
  1. CIFLOX [Suspect]
     Indication: PROSTATITIS
     Route: 042
     Dates: start: 20071217, end: 20071221
  2. GENTALINE [Suspect]
     Indication: DRUG USE FOR UNKNOWN INDICATION
     Route: 042
     Dates: start: 20071217, end: 20071221
  3. BACTRIM [Suspect]
     Indication: DRUG USE FOR UNKNOWN INDICATION
     Route: 048
     Dates: start: 20071222, end: 20080116

REACTIONS (11)
  - ASTHENIA [None]
  - CHILLS [None]
  - CONFUSIONAL STATE [None]
  - COUGH [None]
  - DRUG RASH WITH EOSINOPHILIA AND SYSTEMIC SYMPTOMS [None]
  - HYPERTHERMIA [None]
  - PRODUCTIVE COUGH [None]
  - PRURITUS [None]
  - PURPURA [None]
  - RASH [None]
  - RASH MACULO-PAPULAR [None]
